FAERS Safety Report 5568872-5 (Version None)
Quarter: 2007Q4

REPORT INFORMATION
  Report Type: 
  Country: None (occurrence: None)
  Receive Date: 20071217
  Receipt Date: 20071004
  Transmission Date: 20080405
  Serious: No
  Sender: FDA-Public Use
  Company Number: 14002596

PATIENT
  Age: 40 Year
  Sex: Male

DRUGS (1)
  1. NALTREXONE HYDROCHLORIDE [Suspect]
     Route: 048

REACTIONS (2)
  - MOUTH INJURY [None]
  - SELF MUTILATION [None]
